FAERS Safety Report 9022163 (Version 1)
Quarter: 2013Q1

REPORT INFORMATION
  Report Type: Spontaneous
  Country: FR (occurrence: FR)
  Receive Date: 20130118
  Receipt Date: 20130118
  Transmission Date: 20140127
  Serious: Yes (Hospitalization, Other)
  Sender: FDA-Public Use
  Company Number: FR-ASTRAZENECA-2013SE01904

PATIENT
  Age: 15137 Day
  Sex: Male

DRUGS (11)
  1. XEROQUEL [Suspect]
     Route: 048
     Dates: start: 20121114, end: 20121116
  2. XEROQUEL [Suspect]
     Route: 048
     Dates: start: 20121119, end: 20121121
  3. TERCIAN [Concomitant]
     Route: 048
     Dates: start: 20121114, end: 20121116
  4. TERCIAN [Concomitant]
     Route: 048
     Dates: start: 20121127
  5. RISPERDAL CONSTA [Concomitant]
     Route: 030
     Dates: start: 201209
  6. BUSPIRONE CHLORHYDRATE [Concomitant]
     Route: 048
     Dates: start: 201209
  7. BEVITINE [Concomitant]
     Route: 048
     Dates: start: 201209
  8. SEROPLEX [Concomitant]
     Route: 048
     Dates: start: 201209
  9. SYMBICORT TBH [Concomitant]
     Route: 055
     Dates: start: 201209
  10. SERESTA [Concomitant]
     Route: 048
     Dates: start: 201209
  11. VENTOLINE [Concomitant]
     Route: 055
     Dates: start: 201209

REACTIONS (2)
  - Tonsillitis [Unknown]
  - Neutropenia [Recovered/Resolved]
